FAERS Safety Report 4633987-2 (Version None)
Quarter: 2005Q2

REPORT INFORMATION
  Report Type: 
  Country: None (occurrence: None)
  Receive Date: 20050412
  Receipt Date: 20050412
  Transmission Date: 20051028
  Serious: Yes (Disabling, Other)
  Sender: FDA-Public Use
  Company Number: None

PATIENT
  Age: 41 Year
  Sex: Female

DRUGS (2)
  1. LOTREL [Suspect]
     Indication: ESSENTIAL HYPERTENSION
     Dosage: 1 TABLET DAILY ORAL
     Route: 048
  2. CRANBERRY PILL [Concomitant]

REACTIONS (1)
  - SWELLING FACE [None]
